FAERS Safety Report 8235897-0 (Version None)
Quarter: 2012Q1

REPORT INFORMATION
  Report Type: 
  Country: None (occurrence: None)
  Receive Date: 20120326
  Receipt Date: 20120315
  Transmission Date: 20120608
  Serious: Yes (Other)
  Sender: FDA-Public Use
  Company Number: US-ASTRAZENECA-2012SE17869

PATIENT
  Age: 54 Year
  Sex: Female
  Weight: 117.9 kg

DRUGS (3)
  1. WATER PILL [Concomitant]
  2. BLOOD PRESSURE MEDICATION [Concomitant]
     Indication: HYPERTENSION
  3. SYMBICORT [Suspect]
     Indication: CHRONIC OBSTRUCTIVE PULMONARY DISEASE
     Dosage: 80/4.5 MCG 2 PUFFS QD
     Route: 055

REACTIONS (3)
  - OFF LABEL USE [None]
  - PNEUMONIA [None]
  - BRONCHITIS [None]
